FAERS Safety Report 15329794 (Version 6)
Quarter: 2019Q3

REPORT INFORMATION
  Report Type: Spontaneous
  Country: US (occurrence: US)
  Receive Date: 20180829
  Receipt Date: 20190701
  Transmission Date: 20191004
  Serious: Yes (Other)
  Sender: FDA-Public Use
  Company Number: US-PFIZER INC-2018344266

PATIENT
  Age: 88 Year
  Sex: Male

DRUGS (2)
  1. GENOTROPIN [Suspect]
     Active Substance: SOMATROPIN
     Indication: HYPOPITUITARISM
     Dosage: 0.3 MG, DAILY
     Route: 058
     Dates: start: 20060616
  2. GENOTROPIN [Suspect]
     Active Substance: SOMATROPIN
     Indication: GROWTH HORMONE DEFICIENCY
     Dosage: 0.6 MG, DAILY
     Dates: start: 201903

REACTIONS (13)
  - Wrong technique in device usage process [Unknown]
  - Mean cell haemoglobin concentration decreased [Unknown]
  - Immature granulocyte count increased [Unknown]
  - Blood testosterone increased [Unknown]
  - Blood parathyroid hormone increased [Unknown]
  - Vitamin B12 increased [Unknown]
  - Basophil count increased [Unknown]
  - Parkinson^s disease [Not Recovered/Not Resolved]
  - Blood creatinine increased [Unknown]
  - Blood testosterone free abnormal [Unknown]
  - Speech disorder [Unknown]
  - Haematocrit increased [Unknown]
  - Lymphocyte count decreased [Unknown]

NARRATIVE: CASE EVENT DATE: 20181030
